FAERS Safety Report 6349579-3 (Version None)
Quarter: 2009Q3

REPORT INFORMATION
  Report Type: 
  Country: None (occurrence: None)
  Receive Date: 20090911
  Receipt Date: 20090831
  Transmission Date: 20100115
  Serious: Yes (Hospitalization)
  Sender: FDA-Public Use
  Company Number: KR-PFIZER INC-2009266771

PATIENT
  Age: 71 Year

DRUGS (2)
  1. CAMPTOSAR [Suspect]
     Indication: NON-SMALL CELL LUNG CANCER
     Dosage: 60 MG/M2
     Route: 042
     Dates: start: 20090819
  2. CISPLATIN [Concomitant]
     Dosage: UNK
     Route: 042
     Dates: start: 20090819

REACTIONS (1)
  - PNEUMOTHORAX [None]
